FAERS Safety Report 6765884-0 (Version None)
Quarter: 2010Q2

REPORT INFORMATION
  Report Type: 
  Country: None (occurrence: None)
  Receive Date: 20100611
  Receipt Date: 20100601
  Transmission Date: 20101027
  Serious: Yes (Hospitalization)
  Sender: FDA-Public Use
  Company Number: PHHY2010SE36087

PATIENT
  Sex: Female

DRUGS (2)
  1. RITALIN [Suspect]
     Indication: ATTENTION DEFICIT/HYPERACTIVITY DISORDER
     Dosage: UNK,UNK
  2. LEVOTHYROXINE SODIUM [Concomitant]

REACTIONS (2)
  - APLASTIC ANAEMIA [None]
  - PANCYTOPENIA [None]
